FAERS Safety Report 6130973-0 (Version None)
Quarter: 2009Q1

REPORT INFORMATION
  Report Type: 
  Country: None (occurrence: None)
  Receive Date: 20090323
  Receipt Date: 20090310
  Transmission Date: 20090719
  Serious: Yes (Life-Threatening, Hospitalization)
  Sender: FDA-Public Use
  Company Number: 187845ISR

PATIENT
  Age: 71 Year

DRUGS (8)
  1. BISOPROLOL FUMARATE [Suspect]
     Indication: HYPERTENSION
     Dosage: 2.5 MG (2.5 MG, 1 IN 1 D) ORAL
     Route: 048
  2. METFORMIN HCL [Suspect]
     Indication: TYPE 2 DIABETES MELLITUS
     Dosage: 1000 MG (1000 MG, 1 IN 1 D) ORAL
     Route: 048
     Dates: end: 20080401
  3. GLIMEPIRIDE [Suspect]
     Indication: TYPE 2 DIABETES MELLITUS
     Dosage: 1.5 MG (1.5 MG, 1 IN 1 D) ORAL
     Route: 048
     Dates: start: 20060101, end: 20080602
  4. GEZOR [Concomitant]
  5. AMLODIPINE MALEATE [Concomitant]
  6. BICALUTAMIDE [Concomitant]
  7. SIMVASTATIN [Concomitant]
  8. TAMSULOSIN HCL [Concomitant]

REACTIONS (5)
  - DRUG INTERACTION [None]
  - DYSARTHRIA [None]
  - HYPERHIDROSIS [None]
  - HYPOGLYCAEMIA [None]
  - NAUSEA [None]
